FAERS Safety Report 9132086 (Version 1)
Quarter: 2013Q1

REPORT INFORMATION
  Report Type: Spontaneous
  Country: ES (occurrence: ES)
  Receive Date: 20130301
  Receipt Date: 20130301
  Transmission Date: 20140127
  Serious: Yes (Other)
  Sender: FDA-Public Use
  Company Number: ES-TEVA-349728ISR

PATIENT
  Age: 21 Year
  Sex: Female

DRUGS (1)
  1. DRETINELLE [Suspect]
     Dosage: 1 DOSAGE FORMS DAILY; UNIT DOSE: 0,03 MG/3 MG.
     Route: 048

REACTIONS (2)
  - Pregnancy on oral contraceptive [Recovered/Resolved]
  - Drug ineffective [Recovered/Resolved]
